FAERS Safety Report 15096540 (Version 1)
Quarter: 2018Q3

REPORT INFORMATION
  Report Type: Spontaneous
  Country: CZ (occurrence: CZ)
  Receive Date: 20180702
  Receipt Date: 20180702
  Transmission Date: 20181010
  Serious: Yes (Hospitalization)
  Sender: FDA-Public Use
  Company Number: PHHY2018CZ069593

PATIENT
  Sex: Male

DRUGS (1)
  1. GILENYA [Suspect]
     Active Substance: FINGOLIMOD HYDROCHLORIDE
     Indication: PRODUCT USED FOR UNKNOWN INDICATION
     Dosage: UNK
     Route: 065
     Dates: start: 20170413

REACTIONS (4)
  - Neurological examination abnormal [Not Recovered/Not Resolved]
  - Nuclear magnetic resonance imaging abnormal [Unknown]
  - Central nervous system lesion [Unknown]
  - Tumefactive multiple sclerosis [Unknown]

NARRATIVE: CASE EVENT DATE: 20180107
